FAERS Safety Report 4803104-4 (Version None)
Quarter: 2005Q4

REPORT INFORMATION
  Report Type: 
  Country: None (occurrence: None)
  Receive Date: 20051019
  Receipt Date: 20051007
  Transmission Date: 20060501
  Serious: Yes (Hospitalization)
  Sender: FDA-Public Use
  Company Number: 2005UW15092

PATIENT
  Age: 56 Year
  Sex: Male
  Weight: 107.3 kg

DRUGS (3)
  1. CRESTOR [Suspect]
     Indication: HYPERLIPIDAEMIA
     Route: 048
  2. ANGIOMAX [Suspect]
     Indication: ACUTE CORONARY SYNDROME
     Route: 040
     Dates: start: 20050727, end: 20050727
  3. ANGIOMAX [Suspect]
     Route: 042
     Dates: start: 20050727, end: 20050727

REACTIONS (2)
  - HEPATIC ENZYME INCREASED [None]
  - HEPATIC NEOPLASM [None]
